FAERS Safety Report 9405185 (Version 1)
Quarter: 2013Q3

REPORT INFORMATION
  Report Type: Spontaneous
  Country: CA (occurrence: CA)
  Receive Date: 20130717
  Receipt Date: 20130717
  Transmission Date: 20140515
  Serious: Yes (Other)
  Sender: FDA-Public Use
  Company Number: CA-BAYER-2013-085387

PATIENT
  Sex: Male

DRUGS (1)
  1. CIPRO [Suspect]
     Indication: PROSTATITIS
     Dosage: 1000 MG, QD
     Dates: start: 201212, end: 201302

REACTIONS (1)
  - Muscle rupture [Not Recovered/Not Resolved]
